FAERS Safety Report 16946005 (Version 1)
Quarter: 2019Q4

REPORT INFORMATION
  Report Type: Spontaneous
  Country: IT (occurrence: IT)
  Receive Date: 20191022
  Receipt Date: 20191022
  Transmission Date: 20200122
  Serious: Yes (Other)
  Sender: FDA-Public Use
  Company Number: IT-SAMSUNG BIOEPIS-SB-2019-30463

PATIENT
  Age: 57 Year
  Sex: Female
  Weight: 85 kg

DRUGS (1)
  1. IMRALDI [Suspect]
     Active Substance: ADALIMUMAB
     Indication: PSORIATIC ARTHROPATHY
     Route: 058
     Dates: start: 20190201, end: 20190315

REACTIONS (2)
  - Myringitis [Recovering/Resolving]
  - Ear haemorrhage [Recovering/Resolving]

NARRATIVE: CASE EVENT DATE: 20190318
